FAERS Safety Report 8163310-0 (Version None)
Quarter: 2012Q1

REPORT INFORMATION
  Report Type: 
  Country: None (occurrence: None)
  Receive Date: 20120224
  Receipt Date: 20110902
  Transmission Date: 20120608
  Serious: No
  Sender: FDA-Public Use
  Company Number: US-PFIZER INC-K201101034

PATIENT
  Sex: Female

DRUGS (3)
  1. FLECTOR [Suspect]
     Indication: NECK PAIN
     Dosage: 0.5 PATCH, BID
     Route: 061
     Dates: start: 20110101
  2. LORAZEPAM [Concomitant]
  3. FLECTOR [Suspect]
     Indication: ARTHRALGIA

REACTIONS (3)
  - PAIN [None]
  - DRY MOUTH [None]
  - CONTUSION [None]
